FAERS Safety Report 6170840-X (Version None)
Quarter: 2009Q2

REPORT INFORMATION
  Report Type: 
  Country: None (occurrence: None)
  Receive Date: 20090427
  Receipt Date: 20090414
  Transmission Date: 20091009
  Serious: Yes (Other)
  Sender: FDA-Public Use
  Company Number: DSA_33522_2009

PATIENT
  Sex: Male

DRUGS (1)
  1. ADALAT [Suspect]
     Indication: DRUG USE FOR UNKNOWN INDICATION
     Dosage: (60 MG,)

REACTIONS (2)
  - MALAISE [None]
  - SENSATION OF PRESSURE [None]
